FAERS Safety Report 8436905 (Version 3)
Quarter: 2013Q2

REPORT INFORMATION
  Report Type: Spontaneous
  Country: US (occurrence: US)
  Receive Date: 20120302
  Receipt Date: 20130619
  Transmission Date: 20140414
  Serious: Yes (Hospitalization)
  Sender: FDA-Public Use
  Company Number: US-BAYER-2012-018321

PATIENT
  Age: 48 Year
  Sex: Female
  Weight: 63.49 kg

DRUGS (12)
  1. YAZ [Suspect]
     Indication: CONTRACEPTION
     Dosage: 1 DF, QD
     Route: 048
     Dates: start: 19990630, end: 20120209
  2. YAZ [Suspect]
     Indication: CONTRACEPTION
  3. YAZ [Suspect]
     Indication: CONTRACEPTION
  4. TRICOR [Concomitant]
     Dosage: UNK UNK, PRN
  5. TOPAMAX [Concomitant]
  6. VITAMINE C [Concomitant]
  7. CALCIUM [Concomitant]
  8. VITAMIN D [Concomitant]
  9. DOCUSATE SODIUM [Concomitant]
  10. FLAXSEED OIL [Concomitant]
  11. FLOVENT [Concomitant]
  12. NITROGLYCERIN [Concomitant]
     Route: 062

REACTIONS (3)
  - Pulmonary embolism [None]
  - Deep vein thrombosis [None]
  - Pain in extremity [None]
